FAERS Safety Report 21265694 (Version 1)
Quarter: 2022Q3

REPORT INFORMATION
  Report Type: Spontaneous
  Country: US (occurrence: None)
  Receive Date: 20220828
  Receipt Date: 20220828
  Transmission Date: 20221027
  Serious: No
  Sender: FDA-Public Use
  Company Number: None

PATIENT
  Age: 72 Year
  Sex: Female
  Weight: 49.5 kg

DRUGS (1)
  1. VIVITROL [Suspect]
     Active Substance: NALTREXONE
     Indication: Alcohol abuse

REACTIONS (5)
  - Headache [None]
  - Pain [None]
  - Nausea [None]
  - Fatigue [None]
  - Illness [None]

NARRATIVE: CASE EVENT DATE: 20220828
